FAERS Safety Report 12282070 (Version 1)
Quarter: 2016Q2

REPORT INFORMATION
  Report Type: Spontaneous
  Country: US (occurrence: US)
  Receive Date: 20160419
  Receipt Date: 20160419
  Transmission Date: 20160815
  Serious: Yes (Hospitalization, Other)
  Sender: FDA-Public Use
  Company Number: US-FRI-1000084002

PATIENT
  Age: 30 Year
  Sex: Male

DRUGS (2)
  1. TEFLARO [Suspect]
     Active Substance: CEFTAROLINE FOSAMIL
     Indication: ABSCESS LIMB
  2. TEFLARO [Suspect]
     Active Substance: CEFTAROLINE FOSAMIL
     Indication: CELLULITIS
     Dosage: 600 MG (1 DOSE)
     Route: 042
     Dates: start: 20160408, end: 20160408

REACTIONS (3)
  - Anaphylactic reaction [Recovered/Resolved]
  - Rash [Recovered/Resolved]
  - Dyspnoea [Recovered/Resolved]

NARRATIVE: CASE EVENT DATE: 20160408
